FAERS Safety Report 6017086-3 (Version None)
Quarter: 2008Q4

REPORT INFORMATION
  Report Type: 
  Country: None (occurrence: None)
  Receive Date: 20081223
  Receipt Date: 20081215
  Transmission Date: 20090506
  Serious: No
  Sender: FDA-Public Use
  Company Number: BR-JNJFOC-20080905280

PATIENT
  Sex: Female
  Weight: 120 kg

DRUGS (8)
  1. DURAGESIC-100 [Suspect]
     Indication: NEURALGIA
     Route: 062
  2. DURAGESIC-100 [Suspect]
     Indication: PAIN
     Route: 062
  3. DURAGESIC-100 [Suspect]
     Indication: ANALGESIA
     Route: 062
  4. ATENOLOL [Concomitant]
     Indication: SENSATION OF PRESSURE
     Route: 048
  5. ATENOLOL [Concomitant]
     Indication: HYPERTENSION
     Route: 048
  6. NOCTOL [Concomitant]
     Indication: SLEEP DISORDER THERAPY
     Route: 048
  7. NOVALGINA [Concomitant]
     Indication: ANALGESIA
     Route: 048
  8. TORAGESIC [Concomitant]
     Indication: ANALGESIA

REACTIONS (7)
  - ABDOMINAL PAIN UPPER [None]
  - APPLICATION SITE DERMATITIS [None]
  - APPLICATION SITE IRRITATION [None]
  - APPLICATION SITE PERSPIRATION [None]
  - APPLICATION SITE PRURITUS [None]
  - PRODUCT QUALITY ISSUE [None]
  - WRONG TECHNIQUE IN DRUG USAGE PROCESS [None]
